FAERS Safety Report 6197422-8 (Version None)
Quarter: 2009Q2

REPORT INFORMATION
  Report Type: 
  Country: None (occurrence: None)
  Receive Date: 20090521
  Receipt Date: 20090514
  Transmission Date: 20091009
  Serious: Yes (Hospitalization, Other)
  Sender: FDA-Public Use
  Company Number: US-ALLERGAN-0906775US

PATIENT
  Sex: Male

DRUGS (2)
  1. BOTOX [Suspect]
     Indication: DRUG USE FOR UNKNOWN INDICATION
     Dosage: UNK, SINGLE
     Route: 030
     Dates: start: 20090317, end: 20090317
  2. LEVOCARNITINE [Concomitant]
     Indication: MITOCHONDRIAL MYOPATHY
     Dates: start: 20090301

REACTIONS (4)
  - CONSTIPATION [None]
  - HEMIPARESIS [None]
  - MUSCULAR WEAKNESS [None]
  - PNEUMONIA [None]
